FAERS Safety Report 5725255-2 (Version None)
Quarter: 2008Q2

REPORT INFORMATION
  Report Type: 
  Country: None (occurrence: None)
  Receive Date: 20080501
  Receipt Date: 20080424
  Transmission Date: 20081010
  Serious: Yes (Other)
  Sender: FDA-Public Use
  Company Number: US-GILEAD-2008-0016253

PATIENT
  Sex: Female

DRUGS (9)
  1. LETAIRIS [Suspect]
     Indication: PULMONARY HYPERTENSION
     Route: 048
  2. COUMADIN [Concomitant]
  3. REMODULIN [Concomitant]
  4. LORTAB [Concomitant]
  5. PRILOSEC [Concomitant]
  6. LASIX [Concomitant]
  7. NEURONTIN [Concomitant]
  8. SPIRONOLACTONE [Concomitant]
  9. REVATIO [Concomitant]

REACTIONS (1)
  - INTERNATIONAL NORMALISED RATIO DECREASED [None]
